FAERS Safety Report 21731877 (Version 1)
Quarter: 2022Q4

REPORT INFORMATION
  Report Type: Report from Study
  Country: US (occurrence: US)
  Receive Date: 20221215
  Receipt Date: 20221215
  Transmission Date: 20230113
  Serious: Yes (Other)
  Sender: FDA-Public Use
  Company Number: US-ABBVIE-4236227

PATIENT
  Sex: Female

DRUGS (1)
  1. VENCLEXTA [Suspect]
     Active Substance: VENETOCLAX
     Indication: Myelodysplastic syndrome
     Dosage: THERAPY CESSATION DATE SHOULD BE ATLEAST : 2022/?EVENT ONSET DATE SHOULD BE 2022 ATLEAST.
     Route: 048
     Dates: start: 202211

REACTIONS (1)
  - Hospitalisation [Unknown]
